FAERS Safety Report 19460370 (Version 1)
Quarter: 2021Q2

REPORT INFORMATION
  Report Type: Spontaneous
  Country: DE (occurrence: DE)
  Receive Date: 20210625
  Receipt Date: 20210625
  Transmission Date: 20210717
  Serious: Yes (Life-Threatening, Hospitalization, Other)
  Sender: FDA-Public Use
  Company Number: DE-AUROBINDO-AUR-APL-2021-025720

PATIENT
  Age: 52 Year
  Sex: Male

DRUGS (6)
  1. LIDOCAINE. [Suspect]
     Active Substance: LIDOCAINE
     Indication: PERIPHERAL NERVE OPERATION
  2. SUFENTANIL [Concomitant]
     Active Substance: SUFENTANIL
     Indication: MAINTENANCE OF ANAESTHESIA
     Dosage: UNK
     Route: 042
  3. LIDOCAINE. [Suspect]
     Active Substance: LIDOCAINE
     Indication: LOCAL ANAESTHESIA
     Dosage: INTERSCALENE BRACHIAL PLEXUS BLOCK
     Route: 065
  4. ROPIVACAINE. [Suspect]
     Active Substance: ROPIVACAINE HYDROCHLORIDE
     Indication: LOCAL ANAESTHESIA
     Dosage: INTERSCALENE BRACHIAL PLEXUS BLOCK
  5. ROPIVACAINE. [Suspect]
     Active Substance: ROPIVACAINE HYDROCHLORIDE
     Indication: PERIPHERAL NERVE OPERATION
     Dosage: INTERSCALENE BRACHIAL PLEXUS BLOCK, (ONE TOTAL)
  6. PROPOFOL. [Concomitant]
     Active Substance: PROPOFOL
     Indication: MAINTENANCE OF ANAESTHESIA
     Dosage: UNK
     Route: 042

REACTIONS (9)
  - Pneumonia aspiration [Unknown]
  - Nervous system disorder [Recovering/Resolving]
  - Aggression [Recovering/Resolving]
  - Neurotoxicity [Recovering/Resolving]
  - Partial seizures [Recovered/Resolved]
  - Anxiety [Recovering/Resolving]
  - Gait disturbance [Recovering/Resolving]
  - Altered state of consciousness [Recovered/Resolved]
  - Dysphagia [Unknown]
